FAERS Safety Report 8077208-X (Version None)
Quarter: 2012Q1

REPORT INFORMATION
  Report Type: 
  Country: None (occurrence: None)
  Receive Date: 20120127
  Receipt Date: 20120117
  Transmission Date: 20120608
  Serious: Yes (Hospitalization)
  Sender: FDA-Public Use
  Company Number: BE-ABBOTT-11P-013-0871523-00

PATIENT
  Age: 58 Year
  Sex: Female
  Weight: 65 kg

DRUGS (4)
  1. MESTINON [Concomitant]
     Indication: MYASTHENIA GRAVIS
  2. CLARITHROMYCIN [Suspect]
     Indication: ENTERITIS
  3. CYCLOSPORINE [Concomitant]
     Indication: RENAL TRANSPLANT
  4. CLARITHROMYCIN [Suspect]
     Indication: CAMPYLOBACTER GASTROENTERITIS
     Route: 048

REACTIONS (4)
  - DYSPNOEA [None]
  - MALAISE [None]
  - DRUG EFFECT DECREASED [None]
  - MYASTHENIA GRAVIS [None]
